FAERS Safety Report 21455036 (Version 3)
Quarter: 2022Q4

REPORT INFORMATION
  Report Type: Spontaneous
  Country: US (occurrence: US)
  Receive Date: 20221014
  Receipt Date: 20221111
  Transmission Date: 20230113
  Serious: No
  Sender: FDA-Public Use
  Company Number: US-BRISTOL-MYERS SQUIBB COMPANY-2022-119951

PATIENT
  Age: 82 Year
  Sex: Female
  Weight: 62.14 kg

DRUGS (3)
  1. POMALYST [Suspect]
     Active Substance: POMALIDOMIDE
     Indication: Plasma cell myeloma
     Dosage: 2WKON/1WKOFF
     Route: 048
  2. POMALYST [Suspect]
     Active Substance: POMALIDOMIDE
     Dosage: FREQ: DAILY FOR 14 DAYS ON, 7 DAYS OFF
     Route: 048
  3. XPOVIO [Concomitant]
     Active Substance: SELINEXOR
     Indication: Product used for unknown indication

REACTIONS (5)
  - Nausea [Unknown]
  - Intentional product use issue [Unknown]
  - Dyspepsia [Recovering/Resolving]
  - Dyspepsia [Recovering/Resolving]
  - Off label use [Unknown]
